FAERS Safety Report 21369245 (Version 3)
Quarter: 2023Q1

REPORT INFORMATION
  Report Type: Spontaneous
  Country: DE (occurrence: DE)
  Receive Date: 20220923
  Receipt Date: 20230106
  Transmission Date: 20230417
  Serious: Yes (Hospitalization, Other)
  Sender: FDA-Public Use
  Company Number: DE-SANOFI-01282037

PATIENT
  Age: 88 Year
  Sex: Female
  Weight: 60 kg

DRUGS (5)
  1. ENOXAPARIN SODIUM [Suspect]
     Active Substance: ENOXAPARIN SODIUM
     Indication: Knee operation
     Dosage: 40 MG
     Dates: start: 20220612
  2. XARELTO [Concomitant]
     Active Substance: RIVAROXABAN
     Dosage: 15 MG
     Dates: end: 20220612
  3. TORSEMIDE [Concomitant]
     Active Substance: TORSEMIDE
     Dosage: 5 MG
  4. BISOPROLOL FUMARATE [Concomitant]
     Active Substance: BISOPROLOL FUMARATE
     Dosage: 2.5 MG
  5. LEVOTHYROXINE SODIUM [Concomitant]
     Active Substance: LEVOTHYROXINE SODIUM
     Dosage: 0.097 MG

REACTIONS (5)
  - Haematoma muscle [Unknown]
  - Soft tissue swelling [Unknown]
  - Compartment syndrome [Unknown]
  - Pain [Not Recovered/Not Resolved]
  - Carpal tunnel syndrome [Unknown]
